FAERS Safety Report 16773254 (Version 1)
Quarter: 2019Q3

REPORT INFORMATION
  Report Type: Spontaneous
  Country: IE (occurrence: IE)
  Receive Date: 20190904
  Receipt Date: 20190904
  Transmission Date: 20191005
  Serious: Yes (Death)
  Sender: FDA-Public Use
  Company Number: PHHY2019IE205709

PATIENT
  Sex: Male

DRUGS (1)
  1. COSENTYX [Suspect]
     Active Substance: SECUKINUMAB
     Indication: PRODUCT USED FOR UNKNOWN INDICATION
     Dosage: 150 MG, TWICE A MONTH
     Route: 065

REACTIONS (2)
  - Inappropriate schedule of product administration [Unknown]
  - Brain neoplasm [Fatal]

NARRATIVE: CASE EVENT DATE: 20190605
